FAERS Safety Report 7191462-8 (Version None)
Quarter: 2010Q4

REPORT INFORMATION
  Report Type: 
  Country: None (occurrence: None)
  Receive Date: 20101223
  Receipt Date: 20101214
  Transmission Date: 20110411
  Serious: Yes (Death)
  Sender: FDA-Public Use
  Company Number: IT-ROCHE-748118

PATIENT
  Sex: Female

DRUGS (19)
  1. ORLISTAT [Suspect]
     Route: 048
     Dates: end: 20101202
  2. RIVOTRIL [Concomitant]
     Route: 048
  3. DIAZEPAM [Concomitant]
  4. GUTRON [Concomitant]
  5. LEVOTUSS [Concomitant]
  6. DUSPATAL [Concomitant]
  7. ZYPREXA [Concomitant]
  8. ANAFRANIL [Concomitant]
  9. TOPAMAX [Concomitant]
  10. LAMICTAL [Concomitant]
  11. EFFEXOR [Concomitant]
  12. FLUVOXAMINE MALEATE [Concomitant]
  13. HALDOL [Concomitant]
  14. PROZAC [Concomitant]
  15. HALCION [Concomitant]
  16. ADEMETIONINE [Concomitant]
  17. DELORAZEPAM [Concomitant]
     Route: 048
  18. DESMOPRESSIN [Concomitant]
  19. PERIDON [Concomitant]

REACTIONS (5)
  - AGITATION [None]
  - HEART RATE INCREASED [None]
  - HEPATIC FAILURE [None]
  - JAUNDICE [None]
  - PAIN [None]
